FAERS Safety Report 7493923-0 (Version None)
Quarter: 2011Q2

REPORT INFORMATION
  Report Type: 
  Country: None (occurrence: None)
  Receive Date: 20110520
  Receipt Date: 20110513
  Transmission Date: 20111010
  Serious: Yes (Death, Other)
  Sender: FDA-Public Use
  Company Number: BR-MEDIMMUNE-MEDI-0013203

PATIENT
  Sex: Female
  Weight: 2.2 kg

DRUGS (1)
  1. SYNAGIS [Suspect]

REACTIONS (2)
  - DYSPNOEA [None]
  - CARDIAC OPERATION [None]
